FAERS Safety Report 15104429 (Version 1)
Quarter: 2018Q3

REPORT INFORMATION
  Report Type: Spontaneous
  Country: FR (occurrence: FR)
  Receive Date: 20180703
  Receipt Date: 20180703
  Transmission Date: 20181010
  Serious: Yes (Other)
  Sender: FDA-Public Use
  Company Number: FR-SA-2018SA175183

PATIENT
  Age: 67 Year
  Sex: Male

DRUGS (1)
  1. TUBERTEST [Suspect]
     Active Substance: TUBERCULIN PURIFIED PROTEIN DERIVATIVE
     Indication: TUBERCULIN TEST
     Dosage: UNK
     Dates: start: 20180602, end: 20180602

REACTIONS (8)
  - Wrong technique in product usage process [Unknown]
  - Injection site vesicles [Unknown]
  - Injection site reaction [Unknown]
  - Wound [Unknown]
  - Fatigue [Unknown]
  - Pyrexia [Unknown]
  - Respiratory distress [Unknown]
  - Injection site necrosis [Unknown]
